FAERS Safety Report 25083153 (Version 1)
Quarter: 2025Q1

REPORT INFORMATION
  Report Type: Spontaneous
  Country: CN (occurrence: CN)
  Receive Date: 20250317
  Receipt Date: 20250317
  Transmission Date: 20250409
  Serious: Yes (Other)
  Sender: XELLIA PHARMACEUTICALS
  Company Number: CN-Axellia-005567

PATIENT

DRUGS (1)
  1. POLYMYXIN B [Suspect]
     Active Substance: POLYMYXIN B
     Indication: Bacterial infection

REACTIONS (1)
  - Acute kidney injury [Recovered/Resolved]
